FAERS Safety Report 4397161-X (Version None)
Quarter: 2004Q3

REPORT INFORMATION
  Report Type: 
  Country: None (occurrence: None)
  Receive Date: 20040708
  Receipt Date: 20040625
  Transmission Date: 20050211
  Serious: Yes (Death)
  Sender: FDA-Public Use
  Company Number: DE-JNJFOC-20040607414

PATIENT
  Age: 68 Year
  Sex: Male

DRUGS (22)
  1. HALDOL [Suspect]
     Indication: SCHIZOPHRENIA, PARANOID TYPE
     Dosage: 10 MG INTRAVENOUS
     Route: 042
     Dates: start: 20010502, end: 20010605
  2. CLOZAPINE [Suspect]
     Dosage: 500 MG, IN 1 DAY, ORAL; 300 MG, IN 1 DAY, ORAL
     Route: 048
     Dates: end: 20010520
  3. CLOZAPINE [Suspect]
     Dosage: 500 MG, IN 1 DAY, ORAL; 300 MG, IN 1 DAY, ORAL
     Route: 048
     Dates: start: 20010521, end: 20010605
  4. TAXILAN (PERAZINE) [Suspect]
     Dosage: 200 MG, IN 1 DAY, ORAL
     Route: 048
     Dates: end: 20010605
  5. AKINETON [Suspect]
     Dosage: 4 MG, IN 1 DAY, ORAL
     Route: 048
     Dates: end: 20010605
  6. AMITRIPTYLINE HCL [Suspect]
     Dosage: 10 MG, IN 1 DAY, ORAL; 30 MG, IN 1 DAY, ORAL
     Route: 048
     Dates: start: 20010602, end: 20010605
  7. AMITRIPTYLINE HCL [Suspect]
     Dosage: 10 MG, IN 1 DAY, ORAL; 30 MG, IN 1 DAY, ORAL
     Route: 048
     Dates: start: 20010601
  8. NEUROCIL (LEVOMEPRAZINE MALEATE) [Suspect]
     Dosage: 50 MG, IN 1 DAY, ORAL; 75 MG, IN 1 DAY, ORAL; 50 MG, IN 1 DAY, ORAL
     Route: 048
     Dates: start: 20010426, end: 20010503
  9. NEUROCIL (LEVOMEPRAZINE MALEATE) [Suspect]
     Dosage: 50 MG, IN 1 DAY, ORAL; 75 MG, IN 1 DAY, ORAL; 50 MG, IN 1 DAY, ORAL
     Route: 048
     Dates: start: 20010504, end: 20010603
  10. NEUROCIL (LEVOMEPRAZINE MALEATE) [Suspect]
     Dosage: 50 MG, IN 1 DAY, ORAL; 75 MG, IN 1 DAY, ORAL; 50 MG, IN 1 DAY, ORAL
     Route: 048
     Dates: start: 20010604
  11. TRUXAL (CHLORPROTHIXENE HYDROCHLORIDE) [Suspect]
     Dosage: SEE IMAGE
     Route: 048
     Dates: start: 20010427, end: 20010428
  12. TRUXAL (CHLORPROTHIXENE HYDROCHLORIDE) [Suspect]
     Dosage: SEE IMAGE
     Route: 048
     Dates: start: 20010430, end: 20010502
  13. TRUXAL (CHLORPROTHIXENE HYDROCHLORIDE) [Suspect]
     Dosage: SEE IMAGE
     Route: 048
     Dates: start: 20010503, end: 20010508
  14. TRUXAL (CHLORPROTHIXENE HYDROCHLORIDE) [Suspect]
     Dosage: SEE IMAGE
     Route: 048
     Dates: start: 20010509, end: 20010603
  15. TRUXAL (CHLORPROTHIXENE HYDROCHLORIDE) [Suspect]
     Dosage: SEE IMAGE
     Route: 048
     Dates: start: 20010429
  16. TRUXAL (CHLORPROTHIXENE HYDROCHLORIDE) [Suspect]
     Dosage: SEE IMAGE
     Route: 048
     Dates: start: 20010604
  17. GASTROZEPIN [Suspect]
     Dosage: 150 MG, IN 1 DAY, ORAL
     Route: 048
     Dates: start: 20010430, end: 20010605
  18. XANAF (ENALAPRIL MALEATE) [Concomitant]
  19. BELOC-ZOK (BELOC-ZOC COMP) [Concomitant]
  20. BIFITERAL (TABLETS) PROBUCOL [Concomitant]
  21. UNAT COR (TORASEMIDE) [Concomitant]
  22. ADALAT [Concomitant]

REACTIONS (14)
  - ASPARTATE AMINOTRANSFERASE DECREASED [None]
  - BLOOD AMYLASE DECREASED [None]
  - BLOOD POTASSIUM DECREASED [None]
  - CARDIAC PACEMAKER INSERTION [None]
  - CREATINE PHOSPHOKINASE DECREASED [None]
  - DRUG INTERACTION [None]
  - FAECES DISCOLOURED [None]
  - HAEMATEMESIS [None]
  - ILEUS PARALYTIC [None]
  - MULTI-ORGAN FAILURE [None]
  - PNEUMONIA ASPIRATION [None]
  - RESPIRATORY RATE INCREASED [None]
  - SEPSIS [None]
  - SOMNOLENCE [None]
